FAERS Safety Report 4667894-6 (Version None)
Quarter: 2005Q2

REPORT INFORMATION
  Report Type: 
  Country: None (occurrence: None)
  Receive Date: 20050520
  Receipt Date: 20050513
  Transmission Date: 20051028
  Serious: Yes (Death, Life-Threatening)
  Sender: FDA-Public Use
  Company Number: FR-ROCHE-404831

PATIENT
  Age: 28 Year
  Sex: Male

DRUGS (8)
  1. RIVOTRIL [Suspect]
     Indication: DRUG USE FOR UNKNOWN INDICATION
     Route: 048
  2. RIVOTRIL [Suspect]
     Route: 048
     Dates: start: 20050408, end: 20050409
  3. SERESTA [Suspect]
     Indication: DRUG USE FOR UNKNOWN INDICATION
     Route: 048
     Dates: start: 20050408, end: 20050409
  4. TERCIAN [Suspect]
     Indication: DRUG USE FOR UNKNOWN INDICATION
     Route: 048
     Dates: start: 20050408, end: 20050409
  5. SUBUTEX [Suspect]
     Indication: DRUG USE FOR UNKNOWN INDICATION
     Route: 048
     Dates: start: 20050408, end: 20050409
  6. VENTOLIN [Suspect]
     Indication: ASTHMA
     Route: 048
  7. LYSANXIA [Concomitant]
  8. ARTANE [Concomitant]

REACTIONS (3)
  - DEATH [None]
  - SOMNOLENCE [None]
  - VOMITING [None]
